FAERS Safety Report 10050959 (Version 2)
Quarter: 2014Q2

REPORT INFORMATION
  Report Type: Spontaneous
  Country: JP (occurrence: JP)
  Receive Date: 20140401
  Receipt Date: 20140408
  Transmission Date: 20141212
  Serious: Yes (Other)
  Sender: FDA-Public Use
  Company Number: JP-GLAXOSMITHKLINE-B0974629A

PATIENT
  Age: 14 Year
  Sex: Male

DRUGS (4)
  1. RELENZA [Suspect]
     Indication: INFLUENZA
     Dosage: 10MG TWICE PER DAY
     Route: 055
     Dates: start: 20140225, end: 20140301
  2. CALONAL [Concomitant]
     Route: 065
  3. CLARITH [Concomitant]
     Route: 048
  4. MUCOSOLVAN [Concomitant]
     Route: 048

REACTIONS (8)
  - Delirium [Recovered/Resolved]
  - Affect lability [Recovered/Resolved]
  - Abnormal dreams [Recovered/Resolved]
  - Screaming [Recovered/Resolved]
  - Agitation [Recovered/Resolved]
  - Elevated mood [Recovered/Resolved]
  - Crying [Recovered/Resolved]
  - Mental disorder [Recovered/Resolved]
